FAERS Safety Report 5129987-9 (Version None)
Quarter: 2006Q4

REPORT INFORMATION
  Report Type: 
  Country: None (occurrence: None)
  Receive Date: 20061013
  Receipt Date: 20060929
  Transmission Date: 20070319
  Serious: Yes (Life-Threatening)
  Sender: FDA-Public Use
  Company Number: 2006RR-03947

PATIENT
  Age: 75 Year
  Sex: Male
  Weight: 63.5 kg

DRUGS (3)
  1. SIMVASTATIN [Suspect]
     Indication: BLOOD CHOLESTEROL
     Dosage: 40 MG QD ORAL
     Route: 048
     Dates: start: 20060530, end: 20060715
  2. ATORVASTATIN FAMILY [Concomitant]
  3. ENALAPRIL MALEATE [Concomitant]

REACTIONS (4)
  - INTENTIONAL OVERDOSE [None]
  - NIGHTMARE [None]
  - SLEEP DISORDER [None]
  - SUICIDAL IDEATION [None]
